FAERS Safety Report 24660590 (Version 1)
Quarter: 2024Q4

REPORT INFORMATION
  Report Type: Spontaneous
  Country: US (occurrence: None)
  Receive Date: 20241125
  Receipt Date: 20241125
  Transmission Date: 20250115
  Serious: No
  Sender: Public
  Company Number: None

PATIENT
  Age: 68 Year
  Sex: Female
  Weight: 93.6 kg

DRUGS (5)
  1. ACETAMINOPHEN [Suspect]
     Active Substance: ACETAMINOPHEN
     Indication: Headache
     Dosage: OTHER QUANTITY : 2 CAPSULE(S);?FREQUENCY : EVERY 6 HOURS;?
     Route: 048
     Dates: start: 20241115, end: 20241124
  2. ACETAMINOPHEN [Suspect]
     Active Substance: ACETAMINOPHEN
     Indication: Arthralgia
  3. Cane + walker [Concomitant]
  4. CARBIDOPA\LEVODOPA [Concomitant]
     Active Substance: CARBIDOPA\LEVODOPA
  5. Multivitamin [Concomitant]

REACTIONS (9)
  - Pruritus [None]
  - Pruritus [None]
  - Palpitations [None]
  - Lip swelling [None]
  - Swollen tongue [None]
  - Paraesthesia [None]
  - Lacrimation increased [None]
  - Nasal discomfort [None]
  - Rhinorrhoea [None]

NARRATIVE: CASE EVENT DATE: 20241124
